FAERS Safety Report 13733846 (Version 2)
Quarter: 2017Q3

REPORT INFORMATION
  Report Type: Spontaneous
  Country: FR (occurrence: FR)
  Receive Date: 20170707
  Receipt Date: 20170717
  Transmission Date: 20171127
  Serious: Yes (Hospitalization)
  Sender: FDA-Public Use
  Company Number: FR-VIFOR (INTERNATIONAL) INC.-VIT-2017-07302

PATIENT
  Age: 67 Year
  Sex: Male

DRUGS (15)
  1. SODIUM BICARBONATE. [Concomitant]
     Active Substance: SODIUM BICARBONATE
  2. DOLIPRANE [Concomitant]
     Active Substance: ACETAMINOPHEN
  3. KARDEGIC [Concomitant]
     Active Substance: ASPIRIN LYSINE
     Dosage: 1 SACHET AT LUNCH
  4. BISOPROLOL [Concomitant]
     Active Substance: BISOPROLOL
  5. OROCAL [Concomitant]
     Active Substance: CALCIUM CARBONATE
  6. BRICANYL [Concomitant]
     Active Substance: TERBUTALINE SULFATE
  7. VELPHORO [Suspect]
     Active Substance: FERRIC OXYHYDROXIDE
     Indication: CHRONIC KIDNEY DISEASE
     Route: 048
     Dates: start: 201703, end: 20170603
  8. KAYEXALATE [Concomitant]
     Active Substance: SODIUM POLYSTYRENE SULFONATE
     Dosage: ON DAYS WITHOUT DIALYSIS
  9. ATARAX [Concomitant]
     Active Substance: HYDROXYZINE HYDROCHLORIDE
  10. PRIMPERAN [Concomitant]
     Active Substance: METOCLOPRAMIDE HYDROCHLORIDE
  11. CREON [Concomitant]
     Active Substance: PANCRELIPASE AMYLASE\PANCRELIPASE LIPASE\PANCRELIPASE PROTEASE
  12. VELPHORO [Suspect]
     Active Substance: FERRIC OXYHYDROXIDE
     Route: 048
  13. LASILIX [Concomitant]
     Active Substance: FUROSEMIDE
  14. XATRAL LP [Concomitant]
     Active Substance: ALFUZOSIN
  15. INEXIUM [Concomitant]
     Active Substance: ESOMEPRAZOLE

REACTIONS (13)
  - Faecal vomiting [Recovered/Resolved]
  - Hiatus hernia [Unknown]
  - Ileus [Unknown]
  - Faeces discoloured [Recovering/Resolving]
  - Gastrointestinal motility disorder [Unknown]
  - Abdominal pain [Recovered/Resolved]
  - Areflexia [Unknown]
  - Faeces hard [Unknown]
  - Constipation [Unknown]
  - Nausea [Recovered/Resolved]
  - Abdominal pain upper [Unknown]
  - Wheezing [Unknown]
  - Pyrexia [Unknown]

NARRATIVE: CASE EVENT DATE: 201706
